FAERS Safety Report 18334148 (Version 1)
Quarter: 2020Q3

REPORT INFORMATION
  Report Type: Spontaneous
  Country: US (occurrence: US)
  Receive Date: 20200930
  Receipt Date: 20200930
  Transmission Date: 20201103
  Serious: Yes (Hospitalization)
  Sender: FDA-Public Use
  Company Number: None

PATIENT
  Age: 86 Year
  Sex: Male

DRUGS (1)
  1. FUROSEMIDE (FUROSEMIDE 20MG TAB) (1/2 TAB) [Suspect]
     Active Substance: FUROSEMIDE
     Indication: CARDIAC FAILURE CONGESTIVE
     Dates: start: 20200517, end: 20200522

REACTIONS (2)
  - Hyponatraemia [None]
  - Oedema peripheral [None]

NARRATIVE: CASE EVENT DATE: 20200525
